FAERS Safety Report 17411651 (Version 2)
Quarter: 2025Q3

REPORT INFORMATION
  Report Type: Report from Study
  Country: EU (occurrence: EU)
  Receive Date: 20200213
  Receipt Date: 20250711
  Transmission Date: 20251021
  Serious: Yes (Other)
  Sender: AUROBINDO
  Company Number: EU-EMA-DD-20200131-VASISTHA_P-155024

PATIENT
  Age: 53 Year
  Sex: Female

DRUGS (1)
  1. TRANEXAMIC ACID [Suspect]
     Active Substance: TRANEXAMIC ACID
     Indication: Product used for unknown indication
     Route: 065

REACTIONS (11)
  - Spinal fracture [Unknown]
  - Heart rate abnormal [Unknown]
  - Muscular weakness [Unknown]
  - Haemodynamic instability [Unknown]
  - Back pain [Unknown]
  - Pain [Unknown]
  - Blood pressure abnormal [Unknown]
  - PCO2 abnormal [Unknown]
  - Myoclonus [Unknown]
  - Impaired quality of life [Unknown]
  - Wrong product administered [Unknown]
